FAERS Safety Report 13334638 (Version 1)
Quarter: 2017Q1

REPORT INFORMATION
  Report Type: Not Available
  Country: US (occurrence: US)
  Receive Date: 20170314
  Receipt Date: 20170314
  Transmission Date: 20170428
  Serious: Yes (Death)
  Sender: FDA-Public Use
  Company Number: US-ANIPHARMA-2017-US-002562

PATIENT
  Age: 49 Year
  Sex: Female

DRUGS (7)
  1. FLUOXETINE HYDROCHLORIDE (NON-SPECIFIC) [Concomitant]
     Active Substance: FLUOXETINE HYDROCHLORIDE
  2. LORAZEPAM (NON-SPECIFIC) [Suspect]
     Active Substance: LORAZEPAM
     Dosage: UP TO 6MG/DAY
     Route: 065
  3. DIAZEPAM. [Suspect]
     Active Substance: DIAZEPAM
     Dosage: 40MG/DAY
     Route: 065
  4. METHADONE [Suspect]
     Active Substance: METHADONE HYDROCHLORIDE
     Dosage: 120MG/DAY
     Route: 065
  5. BUPROPION. [Concomitant]
     Active Substance: BUPROPION
  6. LIOTHYRONINE [Concomitant]
     Active Substance: LIOTHYRONINE
  7. OXYCODONE (NON-SPECIFIC) [Suspect]
     Active Substance: OXYCODONE
     Dosage: UP TO 100MG/DAY
     Route: 065

REACTIONS (3)
  - Aggression [Unknown]
  - Suicidal ideation [Unknown]
  - Drug withdrawal syndrome [Fatal]
